FAERS Safety Report 16961359 (Version 2)
Quarter: 2020Q1

REPORT INFORMATION
  Report Type: Other
  Country: CA (occurrence: CA)
  Receive Date: 20191025
  Receipt Date: 20200218
  Transmission Date: 20200409
  Serious: Yes (Hospitalization, Congenital Anomaly, Other)
  Sender: FDA-Public Use
  Company Number: CA-PFIZER INC-2019456524

PATIENT
  Sex: Female

DRUGS (2)
  1. GABAPENTIN. [Suspect]
     Active Substance: GABAPENTIN
     Dosage: UNK
     Route: 064
  2. PREDNISONE. [Suspect]
     Active Substance: PREDNISONE
     Dosage: UNK
     Route: 064

REACTIONS (6)
  - Seizure [Unknown]
  - Syndactyly [Unknown]
  - Neonatal respiratory failure [Unknown]
  - Pulmonary aplasia [Unknown]
  - Maternal exposure during pregnancy [Not Recovered/Not Resolved]
  - Congenital hand malformation [Unknown]
